FAERS Safety Report 19628484 (Version 2)
Quarter: 2021Q3

REPORT INFORMATION
  Report Type: Spontaneous
  Country: JP (occurrence: JP)
  Receive Date: 20210728
  Receipt Date: 20210806
  Transmission Date: 20211014
  Serious: Yes (Hospitalization)
  Sender: FDA-Public Use
  Company Number: JP-PFIZER INC-202100918817

PATIENT
  Age: 9 Decade
  Sex: Male

DRUGS (1)
  1. ESTRACYT [Suspect]
     Active Substance: ESTRAMUSTINE
     Indication: PROSTATE CANCER
     Dosage: 156.7 MG
     Route: 048
     Dates: start: 2006

REACTIONS (1)
  - Urinary tract infection [Recovered/Resolved]

NARRATIVE: CASE EVENT DATE: 20210713
